FAERS Safety Report 7804885-8 (Version None)
Quarter: 2011Q4

REPORT INFORMATION
  Report Type: 
  Country: None (occurrence: None)
  Receive Date: 20111010
  Receipt Date: 20110929
  Transmission Date: 20120403
  Serious: Yes (Other)
  Sender: FDA-Public Use
  Company Number: HR-MERCK-1109USA03390

PATIENT
  Age: 67 Year
  Sex: Male

DRUGS (10)
  1. ATORIS [Concomitant]
     Route: 065
  2. ISMN [Concomitant]
     Route: 065
  3. TONOCARDIN [Concomitant]
     Route: 065
  4. FUROSEMIDE [Concomitant]
     Route: 065
  5. INDAPAMIDE [Concomitant]
     Route: 065
  6. PROSCAR [Suspect]
     Route: 048
     Dates: start: 20100201
  7. TAMSULOSIN HYDROCHLORIDE [Concomitant]
     Route: 065
  8. RAMIPRIL [Concomitant]
     Route: 065
  9. PROSCAR [Suspect]
     Indication: BENIGN PROSTATIC HYPERPLASIA
     Route: 048
     Dates: start: 20080201
  10. AMLODIPINE [Concomitant]
     Route: 065

REACTIONS (3)
  - VISION BLURRED [None]
  - VISUAL IMPAIRMENT [None]
  - BLINDNESS [None]
